FAERS Safety Report 6314020-3 (Version None)
Quarter: 2009Q3

REPORT INFORMATION
  Report Type: 
  Country: None (occurrence: None)
  Receive Date: 20090818
  Receipt Date: 20090811
  Transmission Date: 20100115
  Serious: Yes (Other)
  Sender: FDA-Public Use
  Company Number: US-JNJCH-2009021665

PATIENT
  Age: 40 Year
  Sex: Female
  Weight: 63.5 kg

DRUGS (1)
  1. VISINE EYE DROPS [Suspect]
     Indication: DRUG USE FOR UNKNOWN INDICATION
     Dosage: TEXT:UNSPECIFIED
     Route: 048

REACTIONS (8)
  - DYSPNOEA [None]
  - HEADACHE [None]
  - HEPATIC MASS [None]
  - INCORRECT ROUTE OF DRUG ADMINISTRATION [None]
  - LETHARGY [None]
  - NAUSEA [None]
  - OFF LABEL USE [None]
  - PAIN [None]
